FAERS Safety Report 9177381 (Version 2)
Quarter: 2013Q2

REPORT INFORMATION
  Report Type: Spontaneous
  Country: CA (occurrence: CA)
  Receive Date: 20130321
  Receipt Date: 20130502
  Transmission Date: 20140414
  Serious: Yes (Life-Threatening, Hospitalization)
  Sender: FDA-Public Use
  Company Number: CA-SANOFI-AVENTIS-2013SA024907

PATIENT
  Age: 72 Year
  Sex: Female
  Weight: 121 kg

DRUGS (21)
  1. MULTAQ [Suspect]
     Indication: PRODUCT USED FOR UNKNOWN INDICATION
     Route: 065
     Dates: start: 20120503, end: 20120518
  2. ALLOPURINOL [Concomitant]
  3. ALPRAZOLAM [Concomitant]
  4. ALL OTHER THERAPEUTIC PRODUCTS [Concomitant]
  5. CALCIUM [Concomitant]
  6. CIPRALEX [Concomitant]
  7. COLCHICINE [Concomitant]
  8. DOCUSATE [Concomitant]
  9. FLUTICASONE [Concomitant]
  10. FUROSEMIDE [Concomitant]
     Route: 065
  11. LEVOTHYROXINE [Concomitant]
  12. METOPROLOL [Concomitant]
  13. NIFEDIPINE [Concomitant]
  14. OMEPRAZOLE [Concomitant]
  15. PREDNISONE [Concomitant]
  16. RISEDRONATE SODIUM [Concomitant]
  17. ROSUVASTATIN [Concomitant]
  18. ZOLPIDEM TARTRATE [Concomitant]
  19. TYLENOL WITH CODEINE [Concomitant]
  20. VITAMIN D [Concomitant]
  21. WARFARIN [Concomitant]

REACTIONS (3)
  - Oedema peripheral [Recovered/Resolved]
  - Pneumonitis [Recovered/Resolved]
  - Dyspnoea [Recovered/Resolved]
